FAERS Safety Report 7904030-4 (Version None)
Quarter: 2011Q4

REPORT INFORMATION
  Report Type: 
  Country: None (occurrence: None)
  Receive Date: 20111109
  Receipt Date: 20111102
  Transmission Date: 20120403
  Serious: Yes (Death)
  Sender: FDA-Public Use
  Company Number: AU-CELGENEUS-009-21880-11110562

PATIENT
  Age: 69 Year
  Sex: Male

DRUGS (2)
  1. DEXAMETHASONE [Suspect]
     Route: 065
     Dates: end: 20100518
  2. REVLIMID [Suspect]
     Route: 048
     Dates: end: 20100518

REACTIONS (1)
  - DEATH [None]
